FAERS Safety Report 9910217 (Version 2)
Quarter: 2014Q2

REPORT INFORMATION
  Report Type: Report from Study
  Country: IL (occurrence: IL)
  Receive Date: 20140219
  Receipt Date: 20140618
  Transmission Date: 20141212
  Serious: Yes (Hospitalization)
  Sender: FDA-Public Use
  Company Number: IL-ABBVIE-14P-082-1201692-00

PATIENT
  Age: 70 Year
  Sex: Female

DRUGS (1)
  1. HUMIRA [Suspect]
     Indication: CROHN^S DISEASE
     Route: 058
     Dates: start: 20120603

REACTIONS (10)
  - Nephrolithiasis [Unknown]
  - Nephrolithiasis [Unknown]
  - Pain in extremity [Not Recovered/Not Resolved]
  - Peripheral swelling [Not Recovered/Not Resolved]
  - Poor quality sleep [Unknown]
  - Psychomotor hyperactivity [Unknown]
  - Gait disturbance [Unknown]
  - Renal pain [Unknown]
  - Depression [Unknown]
  - Burning sensation [Unknown]
